FAERS Safety Report 4306750-X (Version None)
Quarter: 2004Q1

REPORT INFORMATION
  Report Type: 
  Country: None (occurrence: None)
  Receive Date: 20040220
  Receipt Date: 20040213
  Transmission Date: 20041129
  Serious: Yes (Hospitalization, Other)
  Sender: FDA-Public Use
  Company Number: WAES 0402AUS00086

PATIENT
  Age: 68 Year
  Sex: Male

DRUGS (12)
  1. ALLOPURINOL [Concomitant]
     Indication: GOUT
     Route: 048
     Dates: start: 19890101
  2. CAPTOPRIL [Concomitant]
     Indication: ESSENTIAL HYPERTENSION
     Route: 048
     Dates: start: 19880101
  3. COLCHICINE [Concomitant]
     Indication: GOUT
     Route: 048
     Dates: start: 19890101
  4. DIGOXIN [Concomitant]
     Indication: CARDIAC FAILURE CONGESTIVE
     Route: 048
     Dates: start: 19720101
  5. DILTIAZEM HYDROCHLORIDE [Concomitant]
     Indication: ANGINA PECTORIS
     Route: 048
     Dates: start: 19901001
  6. DILTIAZEM HYDROCHLORIDE [Concomitant]
     Indication: HYPERTENSION
     Route: 048
     Dates: start: 19901001
  7. DOXEPIN HYDROCHLORIDE [Concomitant]
     Indication: SLEEP DISORDER
     Dates: start: 19880101
  8. FUROSEMIDE [Concomitant]
     Route: 048
  9. INSULIN HUMAN [Concomitant]
     Indication: DIABETES MELLITUS
     Route: 058
  10. INSULIN HUMAN, ISOPHANE [Concomitant]
     Indication: DIABETES MELLITUS
     Route: 058
  11. ZOCOR [Suspect]
     Route: 048
     Dates: start: 19920201, end: 19920503
  12. TEMAZEPAM [Concomitant]
     Indication: SLEEP DISORDER
     Route: 048
     Dates: start: 19880101

REACTIONS (6)
  - ACUTE MYOCARDIAL INFARCTION [None]
  - CARDIAC FAILURE [None]
  - CARDIOMYOPATHY [None]
  - DIZZINESS [None]
  - DYSPNOEA [None]
  - MYALGIA [None]
